FAERS Safety Report 16473074 (Version 1)
Quarter: 2019Q2

REPORT INFORMATION
  Report Type: Spontaneous
  Country: US (occurrence: US)
  Receive Date: 20190515
  Receipt Date: 20190515
  Transmission Date: 20190711
  Serious: No
  Sender: FDA-Public Use
  Company Number: None

PATIENT
  Age: 79 Year
  Sex: Female
  Weight: 72.57 kg

DRUGS (10)
  1. MAGNESIUM CITRATE 150MG [Concomitant]
  2. COQ10 [Concomitant]
     Active Substance: UBIDECARENONE
  3. BYSTOLIC [Concomitant]
     Active Substance: NEBIVOLOL HYDROCHLORIDE
  4. VITAMIN B COMPLEX [Concomitant]
     Active Substance: CYANOCOBALAMIN\DEXPANTHENOL\NIACINAMIDE\PYRIDOXINE HYDROCHLORIDE\RIBOFLAVIN 5^-PHOSPHATE SODIUM\THIAMINE HYDROCHLORIDE\VITAMIN B COMPLEX
  5. ANASTROZOLE 1MG - GENERIC FOR ARIMIDEX [Suspect]
     Active Substance: ANASTROZOLE
     Indication: BLOOD OESTROGEN ABNORMAL
     Dosage: ?          QUANTITY:1 DF DOSAGE FORM;?
     Route: 048
     Dates: start: 20190410, end: 20190424
  6. VITAMIN D3 + K2 [Concomitant]
  7. CALCIUM 1200 [Concomitant]
  8. HYDROCOD/ACETAM 7-5-325 MG [Concomitant]
  9. D-MANNOSE 500MG [Concomitant]
  10. METHYLFOLATE 80MCG [Concomitant]

REACTIONS (2)
  - Pain in extremity [None]
  - Condition aggravated [None]

NARRATIVE: CASE EVENT DATE: 20190410
